FAERS Safety Report 11886430 (Version 1)
Quarter: 2016Q1

REPORT INFORMATION
  Report Type: Spontaneous
  Country: DE (occurrence: DE)
  Receive Date: 20160104
  Receipt Date: 20160104
  Transmission Date: 20160526
  Serious: Yes (Hospitalization, Other)
  Sender: FDA-Public Use
  Company Number: DE-PFIZER INC-2015474183

PATIENT
  Age: 61 Year
  Sex: Female

DRUGS (21)
  1. ATRACURIUM [Suspect]
     Active Substance: ATRACURIUM
     Indication: GENERAL ANAESTHESIA
     Dosage: 50 MG, SINGLE
     Route: 042
  2. PROPOFOL. [Suspect]
     Active Substance: PROPOFOL
     Dosage: 180 MG, SINGLE
     Route: 042
  3. PROPOFOL. [Suspect]
     Active Substance: PROPOFOL
     Dosage: 50 MG, SINGLE
     Route: 042
  4. SUFENTANIL [Suspect]
     Active Substance: SUFENTANIL
     Dosage: 50 UG, SINGLE
     Route: 042
  5. ATRACURIUM [Suspect]
     Active Substance: ATRACURIUM
     Dosage: 40 MG, SINGLE
     Route: 042
  6. MIDAZOLAM [Suspect]
     Active Substance: MIDAZOLAM\MIDAZOLAM HYDROCHLORIDE
     Indication: ANAESTHESIA
     Dosage: 7.5 MG, SINGLE
     Route: 048
  7. PROPOFOL. [Suspect]
     Active Substance: PROPOFOL
     Indication: GENERAL ANAESTHESIA
     Dosage: 150 MG, SINGLE
     Route: 042
  8. ATRACURIUM [Suspect]
     Active Substance: ATRACURIUM
     Dosage: 50 MG, SINGLE
     Route: 042
  9. MIDAZOLAM [Suspect]
     Active Substance: MIDAZOLAM\MIDAZOLAM HYDROCHLORIDE
     Indication: PREMEDICATION
     Dosage: 7.5 MG, SINGLE
     Route: 048
  10. PROPOFOL. [Suspect]
     Active Substance: PROPOFOL
     Dosage: UNK
  11. SUFENTANIL [Suspect]
     Active Substance: SUFENTANIL
     Indication: GENERAL ANAESTHESIA
     Dosage: 70 UG, SINGLE
     Route: 042
  12. ATRACURIUM [Suspect]
     Active Substance: ATRACURIUM
     Dosage: 30 MG, SINGLE
     Route: 042
  13. ATRACURIUM [Suspect]
     Active Substance: ATRACURIUM
     Dosage: 50 MG, SINGLE
     Route: 042
  14. MIDAZOLAM [Suspect]
     Active Substance: MIDAZOLAM\MIDAZOLAM HYDROCHLORIDE
     Dosage: 5 MG, SINGLE
  15. PROPOFOL. [Suspect]
     Active Substance: PROPOFOL
     Dosage: 200 MG, SINGLE
     Route: 042
  16. PROPOFOL. [Suspect]
     Active Substance: PROPOFOL
     Dosage: 50 MG, SINGLE
     Route: 042
  17. SUFENTANIL [Suspect]
     Active Substance: SUFENTANIL
     Dosage: 50 UG, SINGLE
     Route: 042
  18. MIDAZOLAM [Suspect]
     Active Substance: MIDAZOLAM\MIDAZOLAM HYDROCHLORIDE
     Dosage: 7.5 MG, SINGLE
     Route: 048
  19. MIDAZOLAM [Suspect]
     Active Substance: MIDAZOLAM\MIDAZOLAM HYDROCHLORIDE
     Dosage: 5 MG, SINGLE
     Route: 048
  20. SUFENTANIL [Suspect]
     Active Substance: SUFENTANIL
     Dosage: 50 UG, SINGLE
     Route: 042
  21. SUFENTANIL [Suspect]
     Active Substance: SUFENTANIL
     Dosage: 50 UG, SINGLE
     Route: 042

REACTIONS (1)
  - Stress cardiomyopathy [Recovered/Resolved]
